FAERS Safety Report 12544912 (Version 1)
Quarter: 2016Q3

REPORT INFORMATION
  Report Type: Spontaneous
  Country: US (occurrence: US)
  Receive Date: 20160711
  Receipt Date: 20160711
  Transmission Date: 20161109
  Serious: No
  Sender: FDA-Public Use
  Company Number: US-GLAXOSMITHKLINE-US2016098098

PATIENT
  Sex: Male

DRUGS (1)
  1. SENSODYNE COMPLETE PROTECTION EXTRA FRESH [Suspect]
     Active Substance: STANNOUS FLUORIDE
     Indication: SENSITIVITY OF TEETH
     Dosage: UNK
     Dates: start: 201606

REACTIONS (2)
  - Sensitivity of teeth [Not Recovered/Not Resolved]
  - Condition aggravated [Not Recovered/Not Resolved]
